FAERS Safety Report 13587422 (Version 6)
Quarter: 2017Q3

REPORT INFORMATION
  Report Type: Report from Study
  Country: US (occurrence: US)
  Receive Date: 20170526
  Receipt Date: 20170719
  Transmission Date: 20171127
  Serious: Yes (Hospitalization)
  Sender: FDA-Public Use
  Company Number: US-ACTELION-A-NJ2017-150643

PATIENT
  Age: 50 Year
  Sex: Female
  Weight: 65.31 kg

DRUGS (9)
  1. VELETRI [Suspect]
     Active Substance: EPOPROSTENOL
     Indication: PULMONARY ARTERIAL HYPERTENSION
     Dosage: 14 NG/KG, PER MIN
     Route: 042
     Dates: start: 201702
  2. VELETRI [Suspect]
     Active Substance: EPOPROSTENOL
     Dosage: 18 NG/KG, PER MIN
     Route: 042
  3. VELETRI [Suspect]
     Active Substance: EPOPROSTENOL
     Dosage: 23 NG/KG, PER MIN
     Route: 042
  4. LETAIRIS [Suspect]
     Active Substance: AMBRISENTAN
     Indication: PRODUCT USED FOR UNKNOWN INDICATION
     Dosage: 10 MG, QD
     Route: 065
     Dates: start: 20110509, end: 20170614
  5. ORENITRAM [Concomitant]
     Active Substance: TREPROSTINIL
  6. VELETRI [Suspect]
     Active Substance: EPOPROSTENOL
     Dosage: 20 NG/KG, PER MIN
     Route: 042
  7. VELETRI [Suspect]
     Active Substance: EPOPROSTENOL
     Dosage: 16 NG/KG, PER MIN
     Route: 042
  8. ADCIRCA [Concomitant]
     Active Substance: TADALAFIL
  9. REMODULIN [Concomitant]
     Active Substance: TREPROSTINIL

REACTIONS (19)
  - Pyrexia [Unknown]
  - Seasonal allergy [Unknown]
  - Catheter site inflammation [Unknown]
  - Chills [Unknown]
  - Dehydration [Unknown]
  - Thrombocytopenia [Unknown]
  - Catheter site pain [Unknown]
  - Catheter site pruritus [Unknown]
  - Pleural effusion [Unknown]
  - Blister [Unknown]
  - Fatigue [Unknown]
  - Flushing [Unknown]
  - Scab [Unknown]
  - Platelet count decreased [Unknown]
  - Catheter site erythema [Unknown]
  - Erythema [Unknown]
  - Pruritus [Unknown]
  - Device related infection [Unknown]
  - Pain in jaw [Unknown]

NARRATIVE: CASE EVENT DATE: 20170411
